FAERS Safety Report 13260786 (Version 1)
Quarter: 2017Q1

REPORT INFORMATION
  Report Type: Report from Study
  Country: US (occurrence: US)
  Receive Date: 20170222
  Receipt Date: 20170222
  Transmission Date: 20170428
  Serious: Yes (Death)
  Sender: FDA-Public Use
  Company Number: US-ASTRAZENECA-2017SE19050

PATIENT
  Sex: Male
  Weight: 11 kg

DRUGS (6)
  1. LANSOPRAZOLE. [Concomitant]
     Active Substance: LANSOPRAZOLE
     Dates: start: 20161206
  2. SYNAGIS [Suspect]
     Active Substance: PALIVIZUMAB
     Indication: BRONCHIOLITIS
     Dosage: MONTHLY
     Route: 030
     Dates: start: 20151201, end: 20170123
  3. SYNAGIS [Suspect]
     Active Substance: PALIVIZUMAB
     Indication: LUNG DISORDER
     Dosage: MONTHLY
     Route: 030
     Dates: start: 20151201, end: 20170123
  4. SYNAGIS [Suspect]
     Active Substance: PALIVIZUMAB
     Indication: OXYGEN SUPPLEMENTATION
     Dosage: MONTHLY
     Route: 030
     Dates: start: 20151201, end: 20170123
  5. TOPIRAMATE. [Concomitant]
     Active Substance: TOPIRAMATE
     Dates: start: 20161206
  6. CARAFATE [Concomitant]
     Active Substance: SUCRALFATE
     Dates: start: 20161206

REACTIONS (3)
  - Death [Fatal]
  - Product use issue [Unknown]
  - Off label use [Unknown]
